FAERS Safety Report 7891120-8 (Version None)
Quarter: 2011Q4

REPORT INFORMATION
  Report Type: 
  Country: None (occurrence: None)
  Receive Date: 20111103
  Receipt Date: 20110729
  Transmission Date: 20120403
  Serious: No
  Sender: FDA-Public Use
  Company Number: US-AMGEN-USASP2011038520

PATIENT
  Age: 64 Year
  Sex: Male
  Weight: 126.5 kg

DRUGS (3)
  1. ZOCOR [Concomitant]
  2. ENBREL [Suspect]
     Indication: PSORIASIS
     Dosage: 50 MG, QWK
     Dates: start: 20110621
  3. LISINOPRIL [Concomitant]
     Dosage: 5 MG, UNK

REACTIONS (2)
  - PSORIASIS [None]
  - PRURITUS [None]
